FAERS Safety Report 12048023 (Version 3)
Quarter: 2016Q2

REPORT INFORMATION
  Report Type: Spontaneous
  Country: KR (occurrence: KR)
  Receive Date: 20160209
  Receipt Date: 20160623
  Transmission Date: 20160815
  Serious: Yes (Hospitalization, Other)
  Sender: FDA-Public Use
  Company Number: KR-009507513-1602KOR003651

PATIENT
  Age: 63 Year
  Sex: Male
  Weight: 40 kg

DRUGS (23)
  1. XELODA [Concomitant]
     Active Substance: CAPECITABINE
     Indication: GASTRIC CANCER
     Dosage: 1000MG, BID, CYCLE 1
     Route: 048
     Dates: start: 20151210, end: 20151224
  2. FURTMAN [Concomitant]
     Indication: PROPHYLAXIS
     Dosage: 0.2 ML, QD
     Route: 042
     Dates: start: 20151201, end: 20151203
  3. MACPERAN [Concomitant]
     Active Substance: METOCLOPRAMIDE HYDROCHLORIDE
     Indication: PROPHYLAXIS OF NAUSEA AND VOMITING
     Dosage: 10 MG, QD
     Route: 042
     Dates: start: 20151201, end: 20151202
  4. HERCEPTIN [Concomitant]
     Active Substance: TRASTUZUMAB
     Indication: GASTRIC CANCER
     Dosage: 320 MG, QD, CYCLE 1
     Route: 042
     Dates: start: 20151210, end: 20151210
  5. DUROGESIC [Concomitant]
     Active Substance: FENTANYL
     Indication: PAIN
     Dosage: STRENGTH: 25MCG/HR, PATCH, 1 PATCH, QD
     Route: 062
     Dates: start: 20151202, end: 20151216
  6. LOPERAMIDE [Concomitant]
     Active Substance: LOPERAMIDE
     Indication: PROPHYLAXIS AGAINST DIARRHOEA
     Dosage: 2 MG, TID
     Route: 048
     Dates: start: 20151210, end: 20151214
  7. SODIUM BICARBONATE. [Concomitant]
     Active Substance: SODIUM BICARBONATE
     Indication: PROPHYLAXIS
     Dosage: STRENGTH: 8.4 PERCENT, 1.68G/20ML; DOSE: 10 G, QD
     Route: 042
     Dates: start: 20151130, end: 20151130
  8. XELODA [Concomitant]
     Active Substance: CAPECITABINE
     Indication: GASTRIC CANCER
     Dosage: 300 MG, BID, CYCLE 1
     Route: 048
     Dates: start: 20151210, end: 20151224
  9. CISPLAN [Concomitant]
     Active Substance: CISPLATIN
     Indication: GASTRIC CANCER
     Dosage: STRENGTH: 10MG/20ML, 105.6 MG, QD, CYCLE 1
     Route: 042
     Dates: start: 20151210, end: 20151210
  10. TAMIPOOL [Concomitant]
     Active Substance: VITAMINS
     Indication: VITAMIN SUPPLEMENTATION
     Dosage: 5 ML, QD
     Route: 042
     Dates: start: 20151201, end: 20151218
  11. DEXAMETHASONE. [Concomitant]
     Active Substance: DEXAMETHASONE
     Indication: GASTRIC CANCER
     Dosage: 8 MG, QD
     Route: 048
     Dates: start: 20151210, end: 20151212
  12. DEXAMETHASONE SODIUM PHOSPHATE. [Concomitant]
     Active Substance: DEXAMETHASONE SODIUM PHOSPHATE
     Indication: GASTRIC CANCER
     Dosage: 12 MG, QD
     Route: 042
     Dates: start: 20151210, end: 20151210
  13. TRIDOL (TRAMADOL HYDROCHLORIDE) [Concomitant]
     Indication: PAIN
     Dosage: 50 MG, QD (STRENGHT: 50MG/ML)
     Route: 042
     Dates: start: 20151201, end: 20151201
  14. MORPHINE SULFATE. [Concomitant]
     Active Substance: MORPHINE SULFATE
     Indication: PAIN
     Dosage: 1 MG, QD
     Route: 042
     Dates: start: 20151201, end: 20151203
  15. MACPERAN [Concomitant]
     Active Substance: METOCLOPRAMIDE HYDROCHLORIDE
     Indication: PROPHYLAXIS OF NAUSEA AND VOMITING
     Dosage: 10 MG, TID
     Route: 048
     Dates: start: 20151210, end: 20151214
  16. EMEND (FOSAPREPITANT DIMEGLUMINE) [Suspect]
     Active Substance: FOSAPREPITANT DIMEGLUMINE
     Indication: PROPHYLAXIS OF NAUSEA AND VOMITING
     Dosage: 150 MG, ONCE
     Route: 042
     Dates: start: 20151210, end: 20151210
  17. TANTUM [Concomitant]
     Active Substance: BENZYDAMINE HYDROCHLORIDE
     Indication: PROPHYLAXIS
     Dosage: 100 ML, TID
     Route: 050
     Dates: start: 20151130, end: 20151216
  18. WINUF PERI [Concomitant]
     Indication: PROPHYLAXIS
     Dosage: 1450 ML, QD
     Route: 042
     Dates: start: 20151203, end: 20151204
  19. ALOXI [Concomitant]
     Active Substance: PALONOSETRON HYDROCHLORIDE
     Indication: GASTRIC CANCER
     Dosage: 0.25 MG, QD
     Route: 042
     Dates: start: 20151210, end: 20151210
  20. COMBIFLEX PERI [Concomitant]
     Indication: PROPHYLAXIS
     Dosage: 1100 ML, QD
     Route: 042
     Dates: start: 20151201, end: 20151203
  21. FENTORA [Concomitant]
     Active Substance: FENTANYL CITRATE
     Indication: PAIN
     Dosage: 100 MICROGRAM, QD
     Route: 048
     Dates: start: 20151210, end: 20151216
  22. MEGACE F [Concomitant]
     Indication: PROPHYLAXIS
     Dosage: 5 ML, QD
     Route: 048
     Dates: start: 20151203, end: 20151206
  23. LASIX [Concomitant]
     Active Substance: FUROSEMIDE
     Indication: PROPHYLAXIS
     Dosage: 40 MG, QD
     Route: 048
     Dates: start: 20151210, end: 20151210

REACTIONS (1)
  - Peritonitis [Recovered/Resolved]

NARRATIVE: CASE EVENT DATE: 20151214
